FAERS Safety Report 10891776 (Version 4)
Quarter: 2015Q2

REPORT INFORMATION
  Report Type: Report from Study
  Country: DE (occurrence: DE)
  Receive Date: 20150306
  Receipt Date: 20150511
  Transmission Date: 20150821
  Serious: Yes (Hospitalization, Other)
  Sender: FDA-Public Use
  Company Number: DE-ABBVIE-15P-062-1355507-00

PATIENT
  Age: 68 Year
  Sex: Male

DRUGS (1)
  1. DUODOPA [Suspect]
     Active Substance: CARBIDOPA\LEVODOPA
     Indication: PARKINSON^S DISEASE
     Dosage: MD 10ML, CRD 3.1ML/H, ED 1.5ML
     Route: 050
     Dates: start: 2014

REACTIONS (7)
  - Fall [Unknown]
  - Subdural haematoma [Unknown]
  - Subdural haemorrhage [Unknown]
  - Carotid artery stenosis [Unknown]
  - Cerebral infarction [Unknown]
  - Cerebrovascular accident [Recovering/Resolving]
  - Haemorrhagic infarction [Unknown]

NARRATIVE: CASE EVENT DATE: 201409
